FAERS Safety Report 5772965-7 (Version None)
Quarter: 2008Q2

REPORT INFORMATION
  Report Type: 
  Country: None (occurrence: None)
  Receive Date: 20080613
  Receipt Date: 20080604
  Transmission Date: 20081010
  Serious: Yes (Other)
  Sender: FDA-Public Use
  Company Number: FR-PFIZER INC-2008047680

PATIENT
  Age: 60 Year
  Sex: Female

DRUGS (3)
  1. ATORVASTATIN [Suspect]
  2. PRAVASTATIN [Suspect]
  3. SIMVASTATIN [Suspect]

REACTIONS (2)
  - ANTINUCLEAR ANTIBODY INCREASED [None]
  - POLYMYOSITIS [None]
